FAERS Safety Report 5796916-4 (Version None)
Quarter: 2008Q3

REPORT INFORMATION
  Report Type: 
  Country: None (occurrence: None)
  Receive Date: 20080701
  Receipt Date: 20080619
  Transmission Date: 20090109
  Serious: Yes (Hospitalization)
  Sender: FDA-Public Use
  Company Number: FR-SANOFI-SYNTHELABO-A02200801867

PATIENT
  Sex: Female

DRUGS (10)
  1. LEVEMIR [Concomitant]
     Indication: DRUG USE FOR UNKNOWN INDICATION
     Route: 058
  2. PLAVIX [Concomitant]
     Indication: PROPHYLAXIS
     Dosage: UNK
     Route: 065
  3. CACIT D3 [Concomitant]
     Indication: DRUG USE FOR UNKNOWN INDICATION
     Route: 048
  4. BISOPROLOL FUMARATE [Concomitant]
     Indication: DRUG USE FOR UNKNOWN INDICATION
     Dosage: UNK
     Route: 065
  5. LASIX [Concomitant]
     Indication: DRUG USE FOR UNKNOWN INDICATION
     Route: 048
  6. IRBESARTAN [Concomitant]
     Indication: HYPERTENSION
     Route: 048
  7. NICARDIPINE HCL [Concomitant]
     Indication: HYPERTENSION
     Route: 048
  8. ALEPSAL [Concomitant]
     Indication: EPILEPSY
     Route: 048
  9. TEGRETOL [Concomitant]
     Indication: EPILEPSY
     Route: 048
  10. SKELID [Suspect]
     Indication: OSTEITIS DEFORMANS
     Route: 048
     Dates: start: 20080422, end: 20080524

REACTIONS (1)
  - GRAND MAL CONVULSION [None]
